FAERS Safety Report 7025399-1 (Version None)
Quarter: 2010Q4

REPORT INFORMATION
  Report Type: 
  Country: None (occurrence: None)
  Receive Date: 20101001
  Receipt Date: 20100922
  Transmission Date: 20110411
  Serious: Yes (Life-Threatening, Hospitalization)
  Sender: FDA-Public Use
  Company Number: GXKR2010CH10807

PATIENT
  Age: 60 Year
  Sex: Female
  Weight: 115 kg

DRUGS (4)
  1. CIPROFLOXACIN HYDROCHLORIDE (NGX) [Suspect]
     Dosage: 500 MG, BID
     Route: 048
     Dates: start: 20100721, end: 20100727
  2. METFORMIN HCL [Suspect]
     Dosage: 2.5 MG, UNK
     Route: 048
  3. METHOTREXATE (NGX) [Suspect]
     Dosage: 15 MG, UNK
     Route: 048
  4. METRONIDAZOLE [Suspect]
     Dosage: 50 MG, BID
     Route: 048
     Dates: start: 20100721, end: 20100727

REACTIONS (6)
  - ALVEOLITIS ALLERGIC [None]
  - COUGH [None]
  - DYSPNOEA [None]
  - ENDOTRACHEAL INTUBATION [None]
  - MECHANICAL VENTILATION [None]
  - RESPIRATORY FAILURE [None]
